FAERS Safety Report 9686303 (Version 1)
Quarter: 2013Q4

REPORT INFORMATION
  Report Type: Spontaneous
  Country: US (occurrence: US)
  Receive Date: 20131113
  Receipt Date: 20131113
  Transmission Date: 20140711
  Serious: Yes (Other)
  Sender: FDA-Public Use
  Company Number: US-ASTRAZENECA-2013SE82292

PATIENT
  Age: 63 Year
  Sex: Male
  Weight: 57.2 kg

DRUGS (8)
  1. SYMBICORT [Suspect]
     Indication: CHRONIC OBSTRUCTIVE PULMONARY DISEASE
     Dosage: 160/4.5, 2 PUFFS BID
     Route: 055
     Dates: start: 2006, end: 2013
  2. SYMBICORT [Suspect]
     Indication: CHRONIC OBSTRUCTIVE PULMONARY DISEASE
     Dosage: 160 4.5, 2 PUFFS BID
     Route: 055
     Dates: start: 2013
  3. CRESTOR [Suspect]
     Indication: BLOOD CHOLESTEROL ABNORMAL
     Route: 048
     Dates: start: 200610
  4. PULMICORT FLEXHALER [Suspect]
     Indication: CHRONIC OBSTRUCTIVE PULMONARY DISEASE
     Route: 055
     Dates: start: 2013, end: 2013
  5. COREG [Concomitant]
     Indication: CARDIAC FAILURE CONGESTIVE
     Dates: end: 2013
  6. POTASSIUM [Concomitant]
     Indication: MINERAL SUPPLEMENTATION
     Dates: end: 2013
  7. LASIX [Concomitant]
     Indication: CARDIAC FAILURE CONGESTIVE
     Dates: end: 2013
  8. RADIATION THERAPY [Concomitant]
     Dates: start: 2010

REACTIONS (12)
  - Tonsil cancer [Unknown]
  - Tachycardia [Recovered/Resolved]
  - Weight decreased [Recovered/Resolved]
  - Dysgeusia [Recovered/Resolved]
  - Cardiac disorder [Recovering/Resolving]
  - Lung disorder [Recovered/Resolved]
  - Cataract [Recovered/Resolved]
  - Lordosis [Unknown]
  - Mastication disorder [Unknown]
  - Muscle tightness [Unknown]
  - Off label use [Recovered/Resolved]
  - Drug ineffective for unapproved indication [Recovered/Resolved]
